FAERS Safety Report 10006338 (Version 1)
Quarter: 2014Q1

REPORT INFORMATION
  Report Type: Spontaneous
  Country: FR (occurrence: FR)
  Receive Date: 20140313
  Receipt Date: 20140313
  Transmission Date: 20141002
  Serious: Yes (Hospitalization)
  Sender: FDA-Public Use
  Company Number: FR-SA-2014SA026570

PATIENT
  Age: 72 Year
  Sex: Female

DRUGS (11)
  1. STILNOX [Suspect]
     Indication: PRODUCT USED FOR UNKNOWN INDICATION
     Route: 048
     Dates: start: 20140120, end: 20140120
  2. INVANZ [Suspect]
     Indication: PRODUCT USED FOR UNKNOWN INDICATION
     Route: 042
     Dates: start: 20140102, end: 20140121
  3. CIFLOX [Suspect]
     Indication: PRODUCT USED FOR UNKNOWN INDICATION
     Route: 048
     Dates: start: 20131128
  4. EUPANTOL [Concomitant]
     Route: 065
  5. MODOPAR [Concomitant]
     Route: 048
  6. TRIVASTAL [Concomitant]
     Route: 048
  7. LYRICA [Concomitant]
     Route: 048
  8. AMLODIPINE [Concomitant]
     Route: 048
  9. AERIUS [Concomitant]
     Route: 048
  10. DOMPERIDONE [Concomitant]
     Route: 048
  11. CONTRAMAL [Concomitant]
     Route: 048

REACTIONS (5)
  - Bronchial obstruction [Unknown]
  - Rhonchi [Unknown]
  - Wheezing [Unknown]
  - Somnolence [Recovered/Resolved]
  - Confusional state [Recovered/Resolved]
